FAERS Safety Report 23603181 (Version 1)
Quarter: 2024Q1

REPORT INFORMATION
  Report Type: Spontaneous
  Country: CL (occurrence: None)
  Receive Date: 20240307
  Receipt Date: 20240307
  Transmission Date: 20240409
  Serious: Yes (Hospitalization, Other)
  Sender: FDA-Public Use
  Company Number: CL-ROCHE-3519451

PATIENT
  Age: 11 Year
  Sex: Female

DRUGS (7)
  1. MABTHERA [Suspect]
     Active Substance: RITUXIMAB
     Indication: Systemic lupus erythematosus
     Dosage: FORM OF ADMIN.100 MG
     Route: 041
     Dates: start: 20240201
  2. MABTHERA [Suspect]
     Active Substance: RITUXIMAB
     Dosage: FORM OF ADMIN. 500 MG
     Route: 042
     Dates: start: 20240201
  3. MYCOPHENOLIC ACID [Concomitant]
     Active Substance: MYCOPHENOLIC ACID
     Dosage: DOSAGE TEXT TWICE A DAY
     Dates: start: 2023
  4. AMLODIPINE [Concomitant]
     Active Substance: AMLODIPINE BESYLATE
     Dosage: DOSAGE TEXT TWICE A DAY
     Dates: start: 2023
  5. HYDROXYCHLOROQUINE [Concomitant]
     Active Substance: HYDROXYCHLOROQUINE
     Dosage: DOSAGE TEXT 1,000 CAPSULE OR TABLET, ONCE A DAY
     Dates: start: 2023
  6. TRAZODONE HYDROCHLORIDE [Concomitant]
     Active Substance: TRAZODONE HYDROCHLORIDE
     Dates: start: 2023
  7. CALCIUM [Concomitant]
     Active Substance: CALCIUM
     Dates: start: 2023

REACTIONS (9)
  - Rash erythematous [Recovered/Resolved]
  - Ear pruritus [Recovered/Resolved]
  - Eye pruritus [Recovered/Resolved]
  - Throat irritation [Recovered/Resolved]
  - Oedema mouth [Recovered/Resolved]
  - Lip oedema [Recovered/Resolved]
  - Tongue oedema [Recovered/Resolved]
  - Obstructive airways disorder [Unknown]
  - Off label use [Unknown]

NARRATIVE: CASE EVENT DATE: 20240201
